FAERS Safety Report 4699598-8 (Version None)
Quarter: 2005Q2

REPORT INFORMATION
  Report Type: 
  Country: None (occurrence: None)
  Receive Date: 20050624
  Receipt Date: 20050617
  Transmission Date: 20051028
  Serious: Yes (Other)
  Sender: FDA-Public Use
  Company Number: PHEH2005US06890

PATIENT
  Age: 54 Year
  Sex: Male

DRUGS (3)
  1. DIOVAN HCT [Suspect]
     Indication: HYPERTENSION
     Dosage: 160/25 MG
     Dates: start: 20050101, end: 20050615
  2. LIPITOR                                 /NET/ [Concomitant]
  3. TOPROL-XL [Concomitant]

REACTIONS (4)
  - BLOOD CREATININE INCREASED [None]
  - NEPHROLITHIASIS [None]
  - PROTEIN URINE PRESENT [None]
  - URINARY SYSTEM X-RAY [None]
